FAERS Safety Report 12488691 (Version 1)
Quarter: 2016Q2

REPORT INFORMATION
  Report Type: Spontaneous
  Country: FR (occurrence: FR)
  Receive Date: 20160622
  Receipt Date: 20160622
  Transmission Date: 20160815
  Serious: Yes (Other)
  Sender: FDA-Public Use
  Company Number: FR-MALLINCKRODT-T201602546

PATIENT
  Sex: Female

DRUGS (11)
  1. OFIRMEV [Suspect]
     Active Substance: ACETAMINOPHEN
     Indication: INTRAOPERATIVE CARE
     Dosage: UNK
     Route: 042
     Dates: start: 20141201
  2. DESFLURANE. [Suspect]
     Active Substance: DESFLURANE
     Indication: GENERAL ANAESTHESIA
     Dosage: UNK
     Route: 055
     Dates: start: 20141201
  3. LEVOTHYROXINE. [Concomitant]
     Active Substance: LEVOTHYROXINE
  4. SPASFON [Suspect]
     Active Substance: PHLOROGLUCINOL
     Indication: INTRAOPERATIVE CARE
     Dosage: UNK
     Route: 042
     Dates: start: 20141201
  5. DEXAMETHASONE. [Suspect]
     Active Substance: DEXAMETHASONE
     Indication: INTRAOPERATIVE CARE
     Dosage: 8 MG, ONE TIME DOSE
     Route: 065
     Dates: start: 20141201
  6. CEFOXITIN [Suspect]
     Active Substance: CEFOXITIN SODIUM
     Indication: ANTIBIOTIC PROPHYLAXIS
     Dosage: 1 G, ONE TIME DOSE
     Route: 051
     Dates: start: 20141201
  7. PROPOFOL. [Suspect]
     Active Substance: PROPOFOL
     Indication: GENERAL ANAESTHESIA
     Dosage: 300 MG, ONE TIME DOSE
     Route: 042
     Dates: start: 20141201
  8. SYNTOCINON [Suspect]
     Active Substance: OXYTOCIN
     Indication: INTRAOPERATIVE CARE
     Dosage: 5 IU/ML, UNK
     Route: 042
     Dates: start: 20141201
  9. PROFENID [Suspect]
     Active Substance: KETOPROFEN
     Indication: INTRAOPERATIVE CARE
     Dosage: UNK
     Route: 042
     Dates: start: 20141201
  10. SUFENTANIL [Suspect]
     Active Substance: SUFENTANIL
     Indication: GENERAL ANAESTHESIA
     Dosage: 20 MCG, ONE TIME DOSE
     Route: 042
     Dates: start: 20141201
  11. BETADINE [Suspect]
     Active Substance: POVIDONE-IODINE
     Indication: INTRAOPERATIVE CARE
     Dosage: UNK
     Route: 003
     Dates: start: 20141201

REACTIONS (1)
  - Anaphylactic shock [Recovered/Resolved]
